FAERS Safety Report 18052002 (Version 2)
Quarter: 2022Q1

REPORT INFORMATION
  Report Type: Spontaneous
  Country: US (occurrence: US)
  Receive Date: 20200721
  Receipt Date: 20220325
  Transmission Date: 20220423
  Serious: Yes (Death, Other)
  Sender: FDA-Public Use
  Company Number: US-TAKEDA-2020TUS031390

PATIENT

DRUGS (1)
  1. ULORIC [Suspect]
     Active Substance: FEBUXOSTAT
     Indication: Gout
     Dosage: UNK
     Route: 048

REACTIONS (4)
  - Respiratory failure [Fatal]
  - Acute kidney injury [Fatal]
  - Gastrointestinal haemorrhage [Fatal]
  - Coronary artery disease [Unknown]
